FAERS Safety Report 23662435 (Version 1)
Quarter: 2024Q1

REPORT INFORMATION
  Report Type: Other
  Country: CO (occurrence: None)
  Receive Date: 20240322
  Receipt Date: 20240322
  Transmission Date: 20240409
  Serious: Yes (Disabling, Other)
  Sender: FDA-Public Use
  Company Number: CO-ROCHE-3530223

PATIENT
  Age: 69 Year
  Sex: Female
  Weight: 63 kg

DRUGS (1)
  1. ALECENSA [Suspect]
     Active Substance: ALECTINIB HYDROCHLORIDE
     Indication: Non-small cell lung cancer
     Dosage: 4 CAPSULES OF 150 MG?LAST DOSE: 19/MAR/2024
     Route: 048
     Dates: start: 202308

REACTIONS (3)
  - Discomfort [Recovering/Resolving]
  - Arthralgia [Recovering/Resolving]
  - Metastases to bone [Recovering/Resolving]

NARRATIVE: CASE EVENT DATE: 20231201
